FAERS Safety Report 21812759 (Version 1)
Quarter: 2023Q1

REPORT INFORMATION
  Report Type: Spontaneous
  Country: US (occurrence: None)
  Receive Date: 20230101
  Receipt Date: 20230101
  Transmission Date: 20230418
  Serious: Yes (Other)
  Sender: FDA-Public Use
  Company Number: None

PATIENT
  Age: 20 Year
  Sex: Female
  Weight: 201.6 kg

DRUGS (10)
  1. NURTEC ODT [Suspect]
     Active Substance: RIMEGEPANT SULFATE
     Indication: Migraine with aura
     Dosage: FREQUENCY : AS NEEDED;?
     Route: 060
     Dates: start: 20220908, end: 20220909
  2. EFFEXOR [Concomitant]
     Active Substance: VENLAFAXINE HYDROCHLORIDE
  3. LITHIUM [Concomitant]
     Active Substance: LITHIUM
  4. GUANFACINE [Concomitant]
     Active Substance: GUANFACINE
  5. PROZOSIN [Concomitant]
  6. RISPERDAL [Concomitant]
     Active Substance: RISPERIDONE
  7. CAPLYTA [Concomitant]
     Active Substance: LUMATEPERONE
  8. Testosterone-injection [Concomitant]
  9. TYLENOL [Concomitant]
     Active Substance: ACETAMINOPHEN
  10. OMEPRAZOLE [Concomitant]
     Active Substance: OMEPRAZOLE

REACTIONS (12)
  - Abdominal discomfort [None]
  - Hypoaesthesia [None]
  - Paraesthesia [None]
  - Delirium [None]
  - Mental status changes [None]
  - Dizziness [None]
  - Feeling abnormal [None]
  - Asthenia [None]
  - Tremor [None]
  - Nausea [None]
  - Dysarthria [None]
  - Brief resolved unexplained event [None]

NARRATIVE: CASE EVENT DATE: 20220908
